FAERS Safety Report 13806054 (Version 1)
Quarter: 2017Q3

REPORT INFORMATION
  Report Type: Spontaneous
  Country: US (occurrence: US)
  Receive Date: 20170728
  Receipt Date: 20170728
  Transmission Date: 20171127
  Serious: No
  Sender: FDA-Public Use
  Company Number: US-BAYER-2017-133413

PATIENT
  Age: 61 Year
  Sex: Female
  Weight: 56.96 kg

DRUGS (1)
  1. MIRALAX [Suspect]
     Active Substance: POLYETHYLENE GLYCOL 3350
     Indication: GASTROINTESTINAL DISORDER
     Dosage: 4 CAPFULS AT ONCE
     Route: 048
     Dates: start: 20170706, end: 20170706

REACTIONS (8)
  - Faeces soft [Recovered/Resolved]
  - Gastric disorder [Unknown]
  - Product use issue [Unknown]
  - Medication residue present [Recovered/Resolved]
  - Medication residue present [Recovered/Resolved]
  - Therapeutic response unexpected [Recovered/Resolved]
  - Constipation [Not Recovered/Not Resolved]
  - Frequent bowel movements [Recovered/Resolved]

NARRATIVE: CASE EVENT DATE: 20170706
